FAERS Safety Report 8852039 (Version 1)
Quarter: 2012Q4

REPORT INFORMATION
  Report Type: 
  Country: BE (occurrence: BE)
  Receive Date: 20121022
  Receipt Date: 20121022
  Transmission Date: 20130627
  Serious: Yes (Hospitalization, Other)
  Sender: FDA-Public Use
  Company Number: BE-BAYER-2012-110011

PATIENT
  Sex: Male

DRUGS (1)
  1. PROFLOX [Suspect]
     Dosage: 400 mg, QD
     Route: 048

REACTIONS (2)
  - Diarrhoea [Unknown]
  - Gastrointestinal haemorrhage [Unknown]
